FAERS Safety Report 11265631 (Version 1)
Quarter: 2015Q2

REPORT INFORMATION
  Report Type: Spontaneous
  Country: US (occurrence: None)
  Receive Date: 20150619
  Receipt Date: 20150619
  Transmission Date: 20150821
  Serious: Yes (Hospitalization)
  Sender: FDA-Public Use
  Company Number: PHEH2015US007751

PATIENT
  Age: 76 Year
  Sex: Female

DRUGS (15)
  1. FARYDAK [Suspect]
     Active Substance: PANOBINOSTAT
     Indication: PLASMA CELL MYELOMA
     Route: 048
     Dates: start: 20150330
  2. FOLIC ACID. [Concomitant]
     Active Substance: FOLIC ACID
  3. ACETAMINOPHEN (PARACETAMOL) [Concomitant]
     Active Substance: ACETAMINOPHEN
  4. VITAMIN B12 [Concomitant]
     Active Substance: CYANOCOBALAMIN
  5. PRILOSEC (OMEPRAZOLE) [Concomitant]
     Active Substance: OMEPRAZOLE MAGNESIUM
  6. DEXAMETHESONE [Concomitant]
  7. REGLAN (METOCLOPRAMIDE HYDROCHLORIDE) [Concomitant]
  8. HYDROCODONE [Concomitant]
     Active Substance: HYDROCODONE
  9. LOMOTIL (ATROPINE SULFATE, DIPHENOXYLATE HYDROCHLORIDE) [Concomitant]
  10. MEGACE [Concomitant]
     Active Substance: MEGESTROL ACETATE
  11. ASPIRIN (ACETYLSALICYLIC ACID) [Concomitant]
     Active Substance: ASPIRIN
  12. CLACIUM + D (CALCIUM CARBONATE, COLECALCIFEROL) [Concomitant]
  13. ZOFRAN (ONDANSETRON HYDROCHLORIDE) [Concomitant]
  14. NYSTATIN. [Concomitant]
     Active Substance: NYSTATIN
  15. PROBIOTIC (BIFICOBACTERIUM INFANTIS, LACTOBACILLUS ACIDOPHILUS) [Concomitant]

REACTIONS (1)
  - Dehydration [None]
